FAERS Safety Report 9890747 (Version 1)
Quarter: 2014Q1

REPORT INFORMATION
  Report Type: Spontaneous
  Country: US (occurrence: None)
  Receive Date: 20140207
  Receipt Date: 20140207
  Transmission Date: 20141002
  Serious: Yes (Death)
  Sender: FDA-Public Use
  Company Number: UTC-044234

PATIENT
  Age: 64 Year
  Sex: Male
  Weight: 68.2 kg

DRUGS (3)
  1. REMODULIN(INJECTION FOR INFUSION) (TREPROSTINIL SODIUM) [Suspect]
     Indication: COR PULMONALE CHRONIC
     Dosage: 0.049 UG/KG 1 IN 1 MIN
     Route: 041
     Dates: start: 20111008
  2. ADCIRCA(TADALAFIL) [Concomitant]
  3. FLOLAN(EPOPROSTENOL) [Concomitant]

REACTIONS (1)
  - Death [None]
